FAERS Safety Report 23078278 (Version 3)
Quarter: 2023Q4

REPORT INFORMATION
  Report Type: Spontaneous
  Country: US (occurrence: US)
  Receive Date: 20231018
  Receipt Date: 20231212
  Transmission Date: 20240109
  Serious: Yes (Other)
  Sender: FDA-Public Use
  Company Number: US-Accord-384364

PATIENT
  Age: 71 Year
  Sex: Male

DRUGS (1)
  1. DOCETAXEL [Suspect]
     Active Substance: DOCETAXEL\DOCETAXEL ANHYDROUS
     Indication: Bone cancer metastatic
     Dosage: INJECTION CONCENTRATE?NUMBER OF CYCLE: 35
     Dates: start: 20210427, end: 20220503

REACTIONS (6)
  - Lacrimal structure injury [Unknown]
  - Dry eye [Unknown]
  - Dacryostenosis acquired [Not Recovered/Not Resolved]
  - Off label use [Unknown]
  - Macular oedema [Unknown]
  - Cataract [Not Recovered/Not Resolved]

NARRATIVE: CASE EVENT DATE: 20211227
